FAERS Safety Report 8086423-0 (Version None)
Quarter: 2012Q1

REPORT INFORMATION
  Report Type: 
  Country: None (occurrence: None)
  Receive Date: 20120128
  Receipt Date: 20110505
  Transmission Date: 20120608
  Serious: No
  Sender: FDA-Public Use
  Company Number: US-ABBOTT-11P-163-0723910-00

PATIENT
  Age: 57 Year
  Sex: Male

DRUGS (7)
  1. VERAPAMIL [Concomitant]
     Indication: HYPERTENSION
     Dosage: 240 MG DAILY
     Route: 048
  2. PROAIR HFA [Concomitant]
     Indication: PRODUCT USED FOR UNKNOWN INDICATION
     Dosage: AS DIRECTED
  3. FLONASE [Concomitant]
     Indication: HYPERSENSITIVITY
     Route: 045
  4. PROVENTALIN MDI [Concomitant]
     Indication: ASTHMA
     Dosage: 2 PUFFS EVERY 4 HOURS AS NEEDED
  5. LOSARTAN POTASSIUM [Concomitant]
     Indication: HYPERTENSION
     Dosage: 10 MG DAILY
     Route: 048
  6. HUMIRA [Suspect]
     Indication: PSORIASIS
     Dates: start: 20100801
  7. ZANTAC [Concomitant]
     Indication: DYSPEPSIA
     Dosage: DAILY
     Route: 048

REACTIONS (3)
  - FATIGUE [None]
  - ARTHRALGIA [None]
  - PYREXIA [None]
